FAERS Safety Report 10079208 (Version 1)
Quarter: 2014Q2

REPORT INFORMATION
  Report Type: Spontaneous
  Country: DE (occurrence: DE)
  Receive Date: 20140415
  Receipt Date: 20140415
  Transmission Date: 20141212
  Serious: Yes (Death, Other)
  Sender: FDA-Public Use
  Company Number: PHHY2014DE045536

PATIENT
  Sex: Female

DRUGS (9)
  1. CICLOSPORIN [Suspect]
     Indication: PROPHYLAXIS AGAINST GRAFT VERSUS HOST DISEASE
  2. CICLOSPORIN [Suspect]
     Indication: CHRONIC GRAFT VERSUS HOST DISEASE
  3. METHOTREXATE [Suspect]
     Indication: PROPHYLAXIS AGAINST GRAFT VERSUS HOST DISEASE
  4. BUSULFAN [Concomitant]
     Indication: CHRONIC MYELOID LEUKAEMIA
     Dosage: 3.3 MG/KG, BID
     Route: 042
  5. FLUDARABINE [Concomitant]
     Indication: CHRONIC MYELOID LEUKAEMIA
     Dosage: 30 MG/M2, 5 TIMES A DAY
     Route: 042
  6. IDARUBICIN [Concomitant]
     Indication: CHRONIC MYELOID LEUKAEMIA
     Dosage: 10 MG/M2, BID
     Route: 041
  7. CYTOSINE ARABINOSIDE [Concomitant]
     Indication: CHRONIC MYELOID LEUKAEMIA
     Dosage: 100 MG/M2, QD
     Route: 041
  8. MOLGRAMOSTIM [Concomitant]
     Dosage: 60 UG/M2, UNK
  9. PREDNISONE [Concomitant]
     Indication: CHRONIC GRAFT VERSUS HOST DISEASE

REACTIONS (3)
  - Cerebral haemorrhage [Fatal]
  - Leukaemia recurrent [Unknown]
  - Acute graft versus host disease [Unknown]
